FAERS Safety Report 5374881-1 (Version None)
Quarter: 2007Q2

REPORT INFORMATION
  Report Type: 
  Country: None (occurrence: None)
  Receive Date: 20070629
  Receipt Date: 20070625
  Transmission Date: 20071010
  Serious: Yes (Disabling)
  Sender: FDA-Public Use
  Company Number: GB-MERCK-0706GBR00111

PATIENT
  Age: 87 Year
  Sex: Female
  Weight: 65 kg

DRUGS (2)
  1. ZOCOR [Suspect]
     Route: 048
     Dates: start: 20061218, end: 20070109
  2. CANDESARTAN [Concomitant]
     Indication: BLOOD PRESSURE
     Route: 048
     Dates: start: 20050408

REACTIONS (2)
  - POLYMYALGIA RHEUMATICA [None]
  - RHEUMATOID ARTHRITIS [None]
